FAERS Safety Report 11161995 (Version 1)
Quarter: 2015Q2

REPORT INFORMATION
  Report Type: Spontaneous
  Country: US (occurrence: None)
  Receive Date: 20150603
  Receipt Date: 20150603
  Transmission Date: 20150821
  Serious: Yes (Hospitalization)
  Sender: FDA-Public Use
  Company Number: None

PATIENT
  Age: 59 Year
  Sex: Male
  Weight: 140 kg

DRUGS (17)
  1. KCL [Concomitant]
     Active Substance: POTASSIUM CHLORIDE
  2. COUMADIN [Concomitant]
     Active Substance: WARFARIN SODIUM
  3. FUROSEMIDE. [Concomitant]
     Active Substance: FUROSEMIDE
  4. INSULIN [Concomitant]
     Active Substance: INSULIN NOS
  5. EFFEXOR XR [Concomitant]
     Active Substance: VENLAFAXINE HYDROCHLORIDE
  6. CHLORTHALIDONE. [Concomitant]
     Active Substance: CHLORTHALIDONE
  7. ERGOCALCIFEROL. [Concomitant]
     Active Substance: ERGOCALCIFEROL
  8. WELLBUTRIN XL [Suspect]
     Active Substance: BUPROPION HYDROCHLORIDE
     Indication: DEPRESSION
     Route: 048
  9. DIGOXIN. [Concomitant]
     Active Substance: DIGOXIN
  10. ALBUTEROL. [Concomitant]
     Active Substance: ALBUTEROL
  11. HUMALOG [Concomitant]
     Active Substance: INSULIN LISPRO
  12. LISINOPRIL. [Concomitant]
     Active Substance: LISINOPRIL
  13. LOPRESSOR [Concomitant]
     Active Substance: METOPROLOL TARTRATE
  14. THEOPHYLLINE [Concomitant]
     Active Substance: THEOPHYLLINE ANHYDROUS
  15. SYMBICORT [Concomitant]
     Active Substance: BUDESONIDE\FORMOTEROL FUMARATE DIHYDRATE
  16. CYMBALS [Concomitant]
  17. DUONEB [Concomitant]
     Active Substance: ALBUTEROL SULFATE\IPRATROPIUM BROMIDE

REACTIONS (1)
  - Seizure [None]

NARRATIVE: CASE EVENT DATE: 20150512
